FAERS Safety Report 23682698 (Version 1)
Quarter: 2024Q1

REPORT INFORMATION
  Report Type: Report from Study
  Country: US (occurrence: US)
  Receive Date: 20240328
  Receipt Date: 20240328
  Transmission Date: 20240410
  Serious: No
  Sender: FDA-Public Use
  Company Number: US-drreddys-SPO/USA/23/0175128

PATIENT
  Age: 5 Year
  Sex: Male

DRUGS (3)
  1. SAPROPTERIN DIHYDROCHLORIDE [Suspect]
     Active Substance: SAPROPTERIN DIHYDROCHLORIDE
     Indication: Phenylketonuria
     Route: 048
  2. SAPROPTERIN DIHYDROCHLORIDE [Suspect]
     Active Substance: SAPROPTERIN DIHYDROCHLORIDE
     Route: 048
  3. Glytactin [Concomitant]
     Indication: Product used for unknown indication

REACTIONS (3)
  - Pharyngitis streptococcal [Unknown]
  - Influenza [Unknown]
  - Ear infection [Unknown]
